FAERS Safety Report 25246775 (Version 1)
Quarter: 2025Q2

REPORT INFORMATION
  Report Type: Spontaneous
  Country: NL (occurrence: NL)
  Receive Date: 20250428
  Receipt Date: 20250428
  Transmission Date: 20250717
  Serious: Yes (Hospitalization)
  Sender: PFIZER
  Company Number: NL-ROCHE-10000250887

PATIENT
  Age: 56 Year
  Sex: Male

DRUGS (6)
  1. BEVACIZUMAB [Suspect]
     Active Substance: BEVACIZUMAB
     Indication: Carcinoid tumour pulmonary
     Route: 042
     Dates: start: 20240410, end: 20240911
  2. PACLITAXEL [Suspect]
     Active Substance: PACLITAXEL
     Indication: Carcinoid tumour pulmonary
     Route: 042
     Dates: start: 20240410, end: 20240620
  3. CARBOPLATIN [Suspect]
     Active Substance: CARBOPLATIN
     Indication: Carcinoid tumour pulmonary
     Route: 042
     Dates: start: 20240410, end: 20240620
  4. PEMETREXED [Suspect]
     Active Substance: PEMETREXED
     Indication: Carcinoid tumour pulmonary
     Route: 065
     Dates: start: 20241009, end: 20241210
  5. ATEZOLIZUMAB [Suspect]
     Active Substance: ATEZOLIZUMAB
     Indication: Carcinoid tumour pulmonary
     Route: 042
     Dates: start: 20240410, end: 20240911
  6. OSIMERTINIB [Suspect]
     Active Substance: OSIMERTINIB
     Indication: Carcinoid tumour pulmonary
     Route: 065
     Dates: start: 20241231

REACTIONS (1)
  - Hyperglycaemia [Not Recovered/Not Resolved]

NARRATIVE: CASE EVENT DATE: 20250217
